FAERS Safety Report 16902774 (Version 1)
Quarter: 2019Q4

REPORT INFORMATION
  Report Type: Report from Study
  Country: US (occurrence: US)
  Receive Date: 20191010
  Receipt Date: 20191010
  Transmission Date: 20200122
  Serious: Yes (Life-Threatening, Hospitalization)
  Sender: FDA-Public Use
  Company Number: US-SA-2019SA276925

PATIENT
  Age: 77 Year
  Sex: Male
  Weight: 101.2 kg

DRUGS (12)
  1. BLINDED VALSARTAN [Suspect]
     Active Substance: VALSARTAN
     Dosage: UNK UNK, UNK
     Route: 065
     Dates: start: 20181228
  2. BLINDED NO STUDY DRUG GIVEN [Suspect]
     Active Substance: INVESTIGATIONAL PRODUCT
     Indication: CARDIAC FAILURE
     Dosage: UNK UNK, UNK
     Route: 048
  3. BLINDED NO STUDY DRUG GIVEN [Suspect]
     Active Substance: INVESTIGATIONAL PRODUCT
     Dosage: UNK UNK, UNK
     Route: 065
     Dates: start: 20181228
  4. PLAVIX [Suspect]
     Active Substance: CLOPIDOGREL BISULFATE
     Indication: ATRIAL FIBRILLATION
  5. ELIQUIS [Suspect]
     Active Substance: APIXABAN
     Indication: CAROTID ARTERY STENOSIS
  6. BLINDED LCZ696 [Suspect]
     Active Substance: SACUBITRIL\VALSARTAN
     Indication: CARDIAC FAILURE
     Dosage: UNK UNK, UNK
     Route: 048
  7. PLAVIX [Suspect]
     Active Substance: CLOPIDOGREL BISULFATE
     Indication: CAROTID ARTERY STENOSIS
  8. PLAVIX [Suspect]
     Active Substance: CLOPIDOGREL BISULFATE
     Indication: CORONARY ARTERY DISEASE
     Dosage: 75 MG, QD
     Route: 048
     Dates: start: 20160705, end: 20181215
  9. ELIQUIS [Suspect]
     Active Substance: APIXABAN
     Indication: ATRIAL FIBRILLATION
  10. BLINDED VALSARTAN [Suspect]
     Active Substance: VALSARTAN
     Indication: CARDIAC FAILURE
     Dosage: UNK UNK, UNK
     Route: 048
  11. BLINDED LCZ696 [Suspect]
     Active Substance: SACUBITRIL\VALSARTAN
     Dosage: UNK UNK, UNK
     Route: 065
     Dates: start: 20181228
  12. ELIQUIS [Suspect]
     Active Substance: APIXABAN
     Indication: CORONARY ARTERY DISEASE
     Dosage: 5 MG, BID
     Route: 048
     Dates: start: 20180420, end: 20181215

REACTIONS (8)
  - Anaemia [Unknown]
  - Laryngeal haemorrhage [Recovered/Resolved]
  - Haemoptysis [Recovered/Resolved]
  - Memory impairment [Unknown]
  - Speech disorder [Unknown]
  - Mobility decreased [Unknown]
  - Melaena [Unknown]
  - Cerebrovascular accident [Recovered/Resolved with Sequelae]

NARRATIVE: CASE EVENT DATE: 20181215
